FAERS Safety Report 5878476-2 (Version None)
Quarter: 2008Q3

REPORT INFORMATION
  Report Type: 
  Country: None (occurrence: None)
  Receive Date: 20080910
  Receipt Date: 20080827
  Transmission Date: 20090109
  Serious: Yes (Hospitalization)
  Sender: FDA-Public Use
  Company Number: 238183J08USA

PATIENT
  Age: 49 Year
  Sex: Female
  Weight: 34.0198 kg

DRUGS (9)
  1. REBIF [Suspect]
     Indication: MULTIPLE SCLEROSIS
     Dosage: 22 MCG, 3 IN 1 WEEKS, SUBCUTANEOUS
     Route: 058
     Dates: start: 20040604
  2. SOMA [Suspect]
     Indication: PAIN
     Dosage: ONCE
     Dates: start: 20080601, end: 20080601
  3. CELEXA [Concomitant]
  4. LORAZEPAM (LORAXEPAM) [Concomitant]
  5. CELLCEPT [Concomitant]
  6. BACLOFEN [Concomitant]
  7. FOSAMAX [Concomitant]
  8. DITROPAN [Concomitant]
  9. TRAMADOL HCL [Concomitant]

REACTIONS (5)
  - CHEST PAIN [None]
  - MULTIPLE SCLEROSIS [None]
  - PAIN [None]
  - RASH [None]
  - VOMITING [None]
